FAERS Safety Report 18418484 (Version 1)
Quarter: 2020Q4

REPORT INFORMATION
  Report Type: Spontaneous
  Country: CN (occurrence: CN)
  Receive Date: 20201023
  Receipt Date: 20201023
  Transmission Date: 20210114
  Serious: Yes (Other)
  Sender: FDA-Public Use
  Company Number: CN-ASTRAZENECA-2020SF36572

PATIENT
  Age: 24965 Day
  Sex: Female
  Weight: 52.5 kg

DRUGS (11)
  1. VITAMIN B6 [Concomitant]
     Active Substance: PYRIDOXINE HYDROCHLORIDE
     Indication: FLUID REPLACEMENT
     Dosage: 0.2G QD, INJECTION, IVGTT
     Route: 065
     Dates: start: 20201005, end: 20201013
  2. VITAMIN C INJECTION [Concomitant]
     Active Substance: ASCORBIC ACID
     Indication: FLUID REPLACEMENT
     Dosage: 2G QD, IVGTT
     Route: 065
     Dates: start: 20201005, end: 20201013
  3. SODIUM CHLORIDE INJECTION [Concomitant]
     Active Substance: SODIUM CHLORIDE
     Dosage: OTSUKA (CHINA) PHARMACEUTICAL CO
     Route: 055
     Dates: start: 20201005, end: 20201011
  4. SODIUM CHLORIDE INJECTION [Concomitant]
     Active Substance: SODIUM CHLORIDE
     Dosage: HANGZHOU MINSHENG PHARMACEUTICAL CO
     Dates: start: 20201005, end: 20201013
  5. SODIUM CHLORIDE INJECTION [Concomitant]
     Active Substance: SODIUM CHLORIDE
     Dosage: HANGZHOU MINSHENG PHARMACEUTICAL CO
     Dates: start: 20201005, end: 20201006
  6. BRICANYL [Suspect]
     Active Substance: TERBUTALINE SULFATE
     Indication: INCREASED VISCOSITY OF BRONCHIAL SECRETION
     Route: 055
     Dates: start: 20201005, end: 20201011
  7. DIFENE [Suspect]
     Active Substance: DICLOFENAC SODIUM
     Indication: ANALGESIC THERAPY
     Route: 048
     Dates: start: 20201005, end: 20201011
  8. ATROVENT [Suspect]
     Active Substance: IPRATROPIUM BROMIDE
     Indication: INCREASED VISCOSITY OF BRONCHIAL SECRETION
     Dosage: 0.5 MG, TWO TIMES A DAY, OXYGEN ATOMIZATION INHALATION,
     Route: 055
     Dates: start: 20201005, end: 20201011
  9. PULMICORT RESPULES [Suspect]
     Active Substance: BUDESONIDE
     Indication: INCREASED VISCOSITY OF BRONCHIAL SECRETION
     Route: 055
     Dates: start: 20201005, end: 20201011
  10. CEFUROXIME SODIUM. [Concomitant]
     Active Substance: CEFUROXIME SODIUM
     Indication: INFECTION PROPHYLAXIS
     Dosage: 1.5G IVGTT BID
     Route: 065
     Dates: start: 20201005, end: 20201006
  11. CEFUROXIME SODIUM. [Concomitant]
     Active Substance: CEFUROXIME SODIUM
     Indication: LIMB INJURY
     Dosage: 1.5G IVGTT BID
     Route: 065
     Dates: start: 20201005, end: 20201006

REACTIONS (1)
  - Hepatic function abnormal [Unknown]

NARRATIVE: CASE EVENT DATE: 20201012
